FAERS Safety Report 8138894-9 (Version None)
Quarter: 2012Q1

REPORT INFORMATION
  Report Type: 
  Country: None (occurrence: None)
  Receive Date: 20120215
  Receipt Date: 20120210
  Transmission Date: 20120608
  Serious: Yes (Death, Hospitalization, Other)
  Sender: FDA-Public Use
  Company Number: US-ELI_LILLY_AND_COMPANY-US201202003067

PATIENT
  Sex: Male

DRUGS (3)
  1. ZOFRAN [Concomitant]
  2. GEMZAR [Suspect]
     Indication: PANCREATIC CARCINOMA
     Dosage: 135 MG, UNK
     Dates: start: 20101029
  3. DECADRON [Concomitant]

REACTIONS (5)
  - NEOPLASM PROGRESSION [None]
  - ABDOMINAL PAIN [None]
  - HYPERTENSION [None]
  - DEATH [None]
  - HOSPITALISATION [None]
